FAERS Safety Report 14429666 (Version 1)
Quarter: 2018Q1

REPORT INFORMATION
  Report Type: Report from Study
  Country: US (occurrence: US)
  Receive Date: 20180123
  Receipt Date: 20180123
  Transmission Date: 20180509
  Serious: Yes (Other)
  Sender: FDA-Public Use
  Company Number: US-AMGEN-USASL2017145352

PATIENT
  Age: 83 Year
  Sex: Female

DRUGS (2)
  1. REPATHA [Suspect]
     Active Substance: EVOLOCUMAB
     Indication: BLOOD CHOLESTEROL INCREASED
     Dosage: 140 MG, Q2WK
     Route: 065
  2. ASPIRIN. [Concomitant]
     Active Substance: ASPIRIN
     Dosage: 81 MG, QD
     Route: 065

REACTIONS (7)
  - Feeling abnormal [Unknown]
  - Muscle strain [Unknown]
  - Dry mouth [Unknown]
  - Memory impairment [Unknown]
  - Injection site bruising [Unknown]
  - Contusion [Unknown]
  - Rhinorrhoea [Unknown]
